FAERS Safety Report 8972456 (Version 1)
Quarter: 2012Q4

REPORT INFORMATION
  Report Type: 
  Country: GB (occurrence: GB)
  Receive Date: 20121219
  Receipt Date: 20121219
  Transmission Date: 20130627
  Serious: Yes (Other)
  Sender: FDA-Public Use
  Company Number: GB-PFIZER INC-2012314599

PATIENT
  Age: 46 Year
  Sex: Male

DRUGS (4)
  1. LINEZOLID [Suspect]
     Indication: STAPHYLOCOCCAL INFECTION
     Dosage: Additional indication: pelvic collection +/-
     Route: 048
     Dates: start: 20121123, end: 20121124
  2. BACLOFEN [Concomitant]
  3. GABAPENTIN [Concomitant]
  4. BENZODIAZEPINE DERIVATIVES [Concomitant]

REACTIONS (2)
  - Grand mal convulsion [Recovered/Resolved]
  - Hyponatraemia [Recovered/Resolved]
